FAERS Safety Report 16647295 (Version 1)
Quarter: 2019Q3

REPORT INFORMATION
  Report Type: Spontaneous
  Country: US (occurrence: US)
  Receive Date: 20190729
  Receipt Date: 20190729
  Transmission Date: 20191004
  Serious: No
  Sender: FDA-Public Use
  Company Number: None

PATIENT
  Age: 1 Day
  Weight: .45 kg

DRUGS (1)
  1. MIACALCIN [Suspect]
     Active Substance: CALCITONIN SALMON
     Route: 051

REACTIONS (2)
  - Product use complaint [None]
  - Product label confusion [None]

NARRATIVE: CASE EVENT DATE: 20190729
